FAERS Safety Report 22222775 (Version 1)
Quarter: 2023Q2

REPORT INFORMATION
  Report Type: Spontaneous
  Country: KR (occurrence: KR)
  Receive Date: 20230418
  Receipt Date: 20230418
  Transmission Date: 20230721
  Serious: Yes (Life-Threatening, Hospitalization)
  Sender: FDA-Public Use
  Company Number: KR-STERISCIENCE B.V.-2023-ST-001145

PATIENT
  Age: 70 Year
  Sex: Female
  Weight: 82.1 kg

DRUGS (13)
  1. MIDAZOLAM [Suspect]
     Active Substance: MIDAZOLAM
     Indication: General anaesthesia
     Dosage: 3 MILLIGRAM
     Route: 065
  2. GLYCOPYRROLATE [Suspect]
     Active Substance: GLYCOPYRROLATE
     Indication: General anaesthesia
     Dosage: 0.2 MILLIGRAM
     Route: 065
  3. PROPOFOL [Suspect]
     Active Substance: PROPOFOL
     Indication: General anaesthesia
     Dosage: 80 MILLIGRAM
     Route: 065
  4. FENTANYL [Suspect]
     Active Substance: FENTANYL
     Indication: General anaesthesia
     Dosage: 50 MICROGRAM
     Route: 065
  5. FENTANYL [Suspect]
     Active Substance: FENTANYL
     Indication: Maintenance of anaesthesia
     Dosage: UNK (INTERMITTENT FENTANYL INJECTION TO MAINTAIN ANAESTHESIA)
     Route: 065
  6. ROCURONIUM [Suspect]
     Active Substance: ROCURONIUM BROMIDE
     Indication: General anaesthesia
     Dosage: 32 MILLIGRAM
     Route: 065
  7. SEVOFLURANE [Suspect]
     Active Substance: SEVOFLURANE
     Indication: General anaesthesia
     Dosage: 1-2%
     Route: 065
  8. SEVOFLURANE [Suspect]
     Active Substance: SEVOFLURANE
     Indication: Maintenance of anaesthesia
  9. EPHEDRINE [Concomitant]
     Active Substance: EPHEDRINE
     Indication: Hypotension
     Dosage: 5 MILLIGRAM, 2 DOSES
     Route: 042
  10. NOREPINEPHRINE [Concomitant]
     Active Substance: NOREPINEPHRINE
     Indication: Hypotension
     Dosage: UNK (INFUSION)
     Route: 042
  11. EPINEPHRINE [Concomitant]
     Active Substance: EPINEPHRINE
     Indication: Hypotension
     Dosage: UNK (INFUSION)
     Route: 042
  12. PREDNISOLONE [Concomitant]
     Active Substance: PREDNISOLONE
     Indication: Neurodermatitis
     Dosage: 5 MILLIGRAM, QD
     Route: 065
  13. ASPIRIN [Concomitant]
     Active Substance: ASPIRIN
     Indication: Chest pain
     Dosage: 100 MILLIGRAM, QD
     Route: 065

REACTIONS (1)
  - Symptom masked [Unknown]
